FAERS Safety Report 13257331 (Version 2)
Quarter: 2017Q1

REPORT INFORMATION
  Report Type: Spontaneous
  Country: BA (occurrence: BA)
  Receive Date: 20170221
  Receipt Date: 20170313
  Transmission Date: 20170428
  Serious: Yes (Other)
  Sender: FDA-Public Use
  Company Number: BA-BAYER-2017-029770

PATIENT
  Sex: Female

DRUGS (3)
  1. AMOKSIKLAV [Concomitant]
     Active Substance: AMOXICILLIN\CLAVULANATE POTASSIUM
     Dosage: 1000 MG, UNK
  2. CIPROBAY 500 MG [Suspect]
     Active Substance: CIPROFLOXACIN
     Indication: PNEUMONIA
     Dosage: 500 MG, UNK
     Route: 048
     Dates: start: 201502
  3. LETROX [Concomitant]
     Active Substance: LEVOTHYROXINE SODIUM
     Dosage: 100 ?G, UNK

REACTIONS (5)
  - Visual field defect [Recovered/Resolved]
  - Tunnel vision [Recovered/Resolved]
  - Fatigue [Recovered/Resolved]
  - Tinnitus [Recovered/Resolved]
  - Urticaria [Recovered/Resolved]

NARRATIVE: CASE EVENT DATE: 2015
